FAERS Safety Report 8778526 (Version 1)
Quarter: 2012Q4

REPORT INFORMATION
  Report Type: 
  Country: US (occurrence: US)
  Receive Date: 20120913
  Receipt Date: 20120913
  Transmission Date: 20130627
  Serious: Yes (Other)
  Sender: FDA-Public Use
  Company Number: US-TEVA-358074USA

PATIENT
  Sex: Male
  Weight: 77.18 kg

DRUGS (5)
  1. NUVIGIL [Suspect]
     Indication: CIRCADIAN RHYTHM SLEEP DISORDER
     Dosage: 150 Milligram Daily;
     Route: 048
     Dates: start: 201003, end: 201007
  2. METFORMIN ER [Concomitant]
     Indication: DIABETES MELLITUS
     Dosage: 1000 Milligram Daily;
     Route: 048
  3. GLIPIZIDE XL [Concomitant]
     Indication: DIABETES MELLITUS
     Dosage: 5 Milligram Daily;
     Route: 048
  4. ASA [Concomitant]
     Dosage: 81 Milligram Daily;
     Route: 048
  5. KCL [Interacting]
     Indication: SUPPLEMENTATION THERAPY
     Dosage: 20 Milliequivalents Daily;
     Route: 048

REACTIONS (2)
  - Withdrawal arrhythmia [Not Recovered/Not Resolved]
  - Atrial fibrillation [Not Recovered/Not Resolved]
